FAERS Safety Report 7602867-2 (Version None)
Quarter: 2011Q2

REPORT INFORMATION
  Report Type: 
  Country: None (occurrence: None)
  Receive Date: 20110630
  Receipt Date: 20110617
  Transmission Date: 20111010
  Serious: Yes (Hospitalization, Disabling, Other)
  Sender: FDA-Public Use
  Company Number: JP-2011-10496

PATIENT
  Age: 63 Year
  Sex: Female
  Weight: 61 kg

DRUGS (12)
  1. OPC-41061 (TOLVAPTAN) TABLET [Suspect]
     Indication: HEPATIC CIRRHOSIS
     Dates: start: 20110302, end: 20110308
  2. RABEPRAZOLE SODIUM [Concomitant]
  3. KANAMYCIN (KANAMYCIN MONOSULFATE) [Concomitant]
  4. AMINOLEBAN EN (NUTRITION FOR HEPATIC INSUFFISIENCY) [Concomitant]
  5. PYRIDOXAL PHOPHATE (PYRIDOXAL PHOSPHATE) [Concomitant]
  6. METALCAPTASE (D-PENICILLAMINDE) [Concomitant]
  7. LIVACT (ISOLEUCINE, LEUCINE, VALINE) [Concomitant]
  8. MONILAC (LACTULOSE) SYRUP [Concomitant]
  9. SHAKUYAKU-KANZO-TO (SHAKUYAKU-KANZO-TO) [Concomitant]
  10. LASIX [Concomitant]
  11. RESTAMIN (DIPHENHYDRAMINE) [Concomitant]
  12. NEOMALLERMIN-TR (D-CHLORPHENIRAMINE MALEATE) [Concomitant]

REACTIONS (21)
  - HYPERKALAEMIA [None]
  - DECREASED APPETITE [None]
  - INFECTION [None]
  - HYPOVOLAEMIA [None]
  - RENAL IMPAIRMENT [None]
  - PSEUDOMEMBRANOUS COLITIS [None]
  - NAUSEA [None]
  - DIALYSIS DISEQUILIBRIUM SYNDROME [None]
  - CONDITION AGGRAVATED [None]
  - ASCITES [None]
  - WEIGHT INCREASED [None]
  - URINE OUTPUT DECREASED [None]
  - HAEMODIALYSIS [None]
  - CONCOMITANT DISEASE AGGRAVATED [None]
  - DISEASE PROGRESSION [None]
  - PLEURAL EFFUSION [None]
  - URINE OUTPUT INCREASED [None]
  - INSOMNIA [None]
  - CLOSTRIDIUM TEST POSITIVE [None]
  - HEPATIC CIRRHOSIS [None]
  - MUSCLE SPASMS [None]
